FAERS Safety Report 7436713-7 (Version None)
Quarter: 2011Q1

REPORT INFORMATION
  Report Type: 
  Country: None (occurrence: None)
  Receive Date: 20110302
  Receipt Date: 20101115
  Transmission Date: 20110831
  Serious: No
  Sender: FDA-Public Use
  Company Number: 022229

PATIENT
  Sex: Male
  Weight: 86.2 kg

DRUGS (8)
  1. RANITIDINE [Concomitant]
  2. XANAX [Concomitant]
  3. EFFEXOR XR [Concomitant]
  4. SIMVASTATIN [Concomitant]
  5. TRAZODONE HCL [Concomitant]
  6. ASACOL [Concomitant]
  7. MULTI-VITAMINS [Concomitant]
  8. CIMZIA [Suspect]
     Indication: CROHN'S DISEASE
     Dosage: 400 MG 1X/MONTH SUBCUTANEOUS
     Route: 058

REACTIONS (2)
  - ARTHRALGIA [None]
  - FISTULA [None]
